FAERS Safety Report 12287511 (Version 2)
Quarter: 2016Q2

REPORT INFORMATION
  Report Type: Other
  Country: FR (occurrence: FR)
  Receive Date: 20160420
  Receipt Date: 20160622
  Transmission Date: 20160815
  Serious: Yes (Other)
  Sender: FDA-Public Use
  Company Number: FR-LABORATOIRE HRA PHARMA-1050794

PATIENT
  Age: 37 Year
  Sex: Female
  Weight: 52 kg

DRUGS (1)
  1. ELLA [Suspect]
     Active Substance: ULIPRISTAL ACETATE
     Route: 048
     Dates: start: 20160308, end: 20160308

REACTIONS (4)
  - Abortion spontaneous [None]
  - Unintended pregnancy [None]
  - Drug ineffective [None]
  - Vaginal haemorrhage [None]

NARRATIVE: CASE EVENT DATE: 20160407
